FAERS Safety Report 7105633-X (Version None)
Quarter: 2010Q4

REPORT INFORMATION
  Report Type: 
  Country: None (occurrence: None)
  Receive Date: 20101116
  Receipt Date: 20101103
  Transmission Date: 20110411
  Serious: Yes (Hospitalization)
  Sender: FDA-Public Use
  Company Number: US-ACTELION-A-NJ2010-41396

PATIENT

DRUGS (4)
  1. BOSENTAN TABLET UNKNOWN US MG [Suspect]
     Indication: PULMONARY ARTERIAL HYPERTENSION
     Dosage: UNK
     Route: 048
     Dates: start: 20040605
  2. COUMADIN [Concomitant]
  3. COZAAR [Concomitant]
  4. ALDACTONE [Concomitant]

REACTIONS (3)
  - ANAEMIA [None]
  - DEHYDRATION [None]
  - RENAL FAILURE [None]
